FAERS Safety Report 25048476 (Version 1)
Quarter: 2025Q1

REPORT INFORMATION
  Report Type: Spontaneous
  Country: US (occurrence: US)
  Receive Date: 20250307
  Receipt Date: 20250307
  Transmission Date: 20250409
  Serious: No
  Sender: GLENMARK
  Company Number: US-GLENMARK PHARMACEUTICALS-2025GMK097195

PATIENT

DRUGS (1)
  1. ETHINYL ESTRADIOL\NORETHINDRONE ACETATE [Suspect]
     Active Substance: ETHINYL ESTRADIOL\NORETHINDRONE ACETATE
     Indication: Oral contraception
     Route: 065

REACTIONS (2)
  - Abnormal withdrawal bleeding [Unknown]
  - Product use issue [Unknown]
